FAERS Safety Report 4355005-6 (Version None)
Quarter: 2004Q2

REPORT INFORMATION
  Report Type: 
  Country: None (occurrence: None)
  Receive Date: 20040504
  Receipt Date: 20040421
  Transmission Date: 20050107
  Serious: Yes (Other)
  Sender: FDA-Public Use
  Company Number: 2004027319

PATIENT
  Age: 85 Year
  Sex: Female

DRUGS (2)
  1. PHENYTOIN SODIUM [Suspect]
     Indication: EPILEPSY
     Dosage: 200 MG (BID), ORAL; 50 MG (OD), ORAL
     Route: 048
  2. ANADIN  INTERNATIONAL CHEMICAL   (ACETYLSALICYLIC ACID, CAFFEINE, QUIN [Concomitant]

REACTIONS (8)
  - ABDOMINAL DISTENSION [None]
  - ANOREXIA [None]
  - CONVULSION [None]
  - DYSPEPSIA [None]
  - FLUID RETENTION [None]
  - HEADACHE [None]
  - NAUSEA [None]
  - THIRST [None]
